FAERS Safety Report 12220266 (Version 1)
Quarter: 2016Q1

REPORT INFORMATION
  Report Type: Spontaneous
  Country: US (occurrence: None)
  Receive Date: 20160329
  Receipt Date: 20160329
  Transmission Date: 20160526
  Serious: No
  Sender: FDA-Public Use
  Company Number: None

PATIENT
  Sex: Female

DRUGS (15)
  1. FUROSEMIDE. [Concomitant]
     Active Substance: FUROSEMIDE
  2. OMEPRAZOLE. [Concomitant]
     Active Substance: OMEPRAZOLE
  3. LEVOTHYROXINE. [Concomitant]
     Active Substance: LEVOTHYROXINE
  4. SUTENT [Suspect]
     Active Substance: SUNITINIB MALATE
     Indication: NON-HODGKIN^S LYMPHOMA
     Route: 048
     Dates: start: 20160204
  5. CARVEDILOL. [Concomitant]
     Active Substance: CARVEDILOL
  6. DOCUSATE SOD [Concomitant]
  7. QVAR [Concomitant]
     Active Substance: BECLOMETHASONE DIPROPIONATE
  8. PROAIR HFA [Concomitant]
     Active Substance: ALBUTEROL SULFATE
  9. PRAVASTATIN [Concomitant]
     Active Substance: PRAVASTATIN\PRAVASTATIN SODIUM
  10. ASPIRIN. [Concomitant]
     Active Substance: ASPIRIN
  11. ENALAPRIL [Concomitant]
     Active Substance: ENALAPRIL
  12. HUMALOG [Concomitant]
     Active Substance: INSULIN LISPRO
  13. MONTELUKAST [Concomitant]
     Active Substance: MONTELUKAST SODIUM
  14. LEVEMIR [Concomitant]
     Active Substance: INSULIN DETEMIR
  15. ADVAIR HFA [Concomitant]
     Active Substance: FLUTICASONE PROPIONATE\SALMETEROL XINAFOATE

REACTIONS (1)
  - Ageusia [None]

NARRATIVE: CASE EVENT DATE: 2016
